FAERS Safety Report 9233817 (Version 2)
Quarter: 2013Q2

REPORT INFORMATION
  Report Type: Spontaneous
  Country: US (occurrence: US)
  Receive Date: 20130416
  Receipt Date: 20130416
  Transmission Date: 20140414
  Serious: No
  Sender: FDA-Public Use
  Company Number: US-MYLANLABS-2012S1023309

PATIENT
  Age: 91 Year
  Sex: Female

DRUGS (4)
  1. NITROFURANTOIN MONOHYDRATE/MACROCRYSTALS CAPSULES [Suspect]
     Indication: URINARY TRACT INFECTION
     Route: 048
     Dates: start: 20121022, end: 20121023
  2. NORVASC [Concomitant]
     Indication: BLOOD PRESSURE INCREASED
  3. DIOVAN [Concomitant]
     Indication: BLOOD PRESSURE INCREASED
  4. SYNTHYROID [Concomitant]
     Indication: HYPOTHYROIDISM

REACTIONS (1)
  - Blood pressure increased [Recovered/Resolved]
